FAERS Safety Report 4322025-7 (Version None)
Quarter: 2004Q1

REPORT INFORMATION
  Report Type: 
  Country: None (occurrence: None)
  Receive Date: 20040323
  Receipt Date: 20040308
  Transmission Date: 20041129
  Serious: Yes (Other)
  Sender: FDA-Public Use
  Company Number: PHNU2004DE01150

PATIENT
  Age: 57 Year
  Sex: Male

DRUGS (3)
  1. PROVAS [Suspect]
     Indication: HYPERTENSION
     Dosage: 1 DF, QD
     Route: 048
     Dates: start: 20040211, end: 20040224
  2. METOPROLOL [Suspect]
     Indication: HYPERTENSION
     Route: 048
  3. ACARBOSE [Concomitant]
     Indication: DIABETES MELLITUS
     Dosage: UNK, UNK
     Route: 048

REACTIONS (1)
  - VISUAL DISTURBANCE [None]
